FAERS Safety Report 4900348-8 (Version None)
Quarter: 2006Q1

REPORT INFORMATION
  Report Type: 
  Country: None (occurrence: None)
  Receive Date: 20060203
  Receipt Date: 20060126
  Transmission Date: 20060701
  Serious: Yes (Hospitalization)
  Sender: FDA-Public Use
  Company Number: FR-GLAXOSMITHKLINE-B0408667A

PATIENT
  Age: 74 Year
  Sex: Male

DRUGS (4)
  1. AUGMENTIN '125' [Suspect]
     Route: 065
     Dates: start: 20051027, end: 20051105
  2. VASTEN [Suspect]
     Route: 048
     Dates: start: 20051027, end: 20051109
  3. ORELOX [Suspect]
     Route: 048
     Dates: start: 20051105, end: 20051109
  4. LOVENOX [Concomitant]
     Route: 065

REACTIONS (6)
  - ALANINE AMINOTRANSFERASE INCREASED [None]
  - ASPARTATE AMINOTRANSFERASE INCREASED [None]
  - GALLBLADDER ENLARGEMENT [None]
  - GAMMA-GLUTAMYLTRANSFERASE INCREASED [None]
  - HEPATITIS [None]
  - PROTHROMBIN TIME PROLONGED [None]
